FAERS Safety Report 9391616 (Version 1)
Quarter: 2013Q3

REPORT INFORMATION
  Report Type: Spontaneous
  Country: US (occurrence: US)
  Receive Date: 20130709
  Receipt Date: 20130709
  Transmission Date: 20140515
  Serious: Yes (Other)
  Sender: FDA-Public Use
  Company Number: US-GLAXOSMITHKLINE-A1029811A

PATIENT
  Age: 51 Year
  Sex: Male

DRUGS (10)
  1. ARIXTRA [Suspect]
     Indication: DEEP VEIN THROMBOSIS
     Dosage: 7.5MG PER DAY
     Route: 058
     Dates: start: 201305
  2. TEMODAR [Concomitant]
  3. VINBLASTIN [Concomitant]
  4. IPILIMUMAB [Concomitant]
  5. INTERLEUKIN [Concomitant]
  6. INTERFERON [Concomitant]
  7. CISPLATIN [Concomitant]
  8. ZOFRAN [Concomitant]
  9. REGLAN [Concomitant]
  10. CHEMOTHERAPY [Concomitant]
     Indication: MALIGNANT MELANOMA

REACTIONS (2)
  - Renal impairment [Unknown]
  - Renal function test abnormal [Unknown]
